FAERS Safety Report 8556989-2 (Version None)
Quarter: 2012Q3

REPORT INFORMATION
  Report Type: 
  Country: None (occurrence: None)
  Receive Date: 20120720
  Receipt Date: 20120704
  Transmission Date: 20120928
  Serious: Yes (Other)
  Sender: FDA-Public Use
  Company Number: AUR-APL-2012-03030

PATIENT
  Age: 23 Year
  Sex: Male

DRUGS (1)
  1. MINOCYCLINE HCL [Suspect]
     Indication: PRODUCT USED FOR UNKNOWN INDICATION

REACTIONS (9)
  - HYPERTENSION [None]
  - RENAL FAILURE [None]
  - FOCAL SEGMENTAL GLOMERULOSCLEROSIS [None]
  - RENAL ANEURYSM [None]
  - WEIGHT DECREASED [None]
  - HEADACHE [None]
  - VASCULITIS [None]
  - RENAL TUBULAR ATROPHY [None]
  - KIDNEY FIBROSIS [None]
